FAERS Safety Report 19687699 (Version 1)
Quarter: 2021Q3

REPORT INFORMATION
  Report Type: Report from Study
  Country: CO (occurrence: CO)
  Receive Date: 20210811
  Receipt Date: 20210811
  Transmission Date: 20211014
  Serious: Yes (Other)
  Sender: FDA-Public Use
  Company Number: NVSC2021CO178460

PATIENT
  Sex: Male

DRUGS (2)
  1. COSENTYX [Suspect]
     Active Substance: SECUKINUMAB
     Dosage: 150 MG, Q2MO (EVERY 2 MONTHS)
     Route: 058
  2. COSENTYX [Suspect]
     Active Substance: SECUKINUMAB
     Indication: PSORIASIS
     Dosage: 300 MG, (2 INJECTIONS) QMO
     Route: 058

REACTIONS (5)
  - Foot fracture [Unknown]
  - Incorrect dose administered [Unknown]
  - Off label use [Unknown]
  - Product name confusion [Unknown]
  - Fall [Unknown]
